FAERS Safety Report 24339829 (Version 1)
Quarter: 2024Q3

REPORT INFORMATION
  Report Type: Spontaneous
  Country: US (occurrence: US)
  Receive Date: 20240919
  Receipt Date: 20240919
  Transmission Date: 20241017
  Serious: No
  Sender: PFIZER
  Company Number: US-PFIZER INC-202400258648

PATIENT
  Age: 73 Year
  Sex: Female

DRUGS (1)
  1. XELJANZ XR [Suspect]
     Active Substance: TOFACITINIB CITRATE
     Indication: Rheumatoid arthritis
     Dosage: 11MG PO (PER ORAL) QD (EVERY DAY)
     Route: 048

REACTIONS (2)
  - Condition aggravated [Unknown]
  - Arthritis infective [Unknown]

NARRATIVE: CASE EVENT DATE: 20240101
